FAERS Safety Report 17421499 (Version 2)
Quarter: 2020Q1

REPORT INFORMATION
  Report Type: Report from Study
  Country: US (occurrence: US)
  Receive Date: 20200214
  Receipt Date: 20200303
  Transmission Date: 20200409
  Serious: Yes (Life-Threatening, Hospitalization, Other)
  Sender: FDA-Public Use
  Company Number: US-PFIZER INC-2019294478

PATIENT
  Age: 54 Year
  Sex: Female

DRUGS (38)
  1. ATIVAN [Concomitant]
     Active Substance: LORAZEPAM
     Indication: ANXIETY
     Dosage: 2 MG, TWO TIMES DAY AS NEEDED
     Route: 048
     Dates: start: 20190221
  2. MAGNESIUM SULFATE. [Concomitant]
     Active Substance: MAGNESIUM SULFATE
     Dosage: UNK
  3. LIORESAL [Concomitant]
     Active Substance: BACLOFEN
     Indication: MUSCLE SPASMS
     Dosage: 10 MG, AS NEEDED  ( 10 MG TOTAL) BY MOUTH 3 (THREE)
     Route: 048
  4. XELJANZ [Suspect]
     Active Substance: TOFACITINIB CITRATE
     Dosage: 10 MG, 2X/DAY
     Route: 048
     Dates: start: 20190603
  5. PREDNISONE. [Concomitant]
     Active Substance: PREDNISONE
     Dosage: 10 MG, UNK
  6. DURAGESIC [Concomitant]
     Active Substance: FENTANYL
     Dosage: UNK (1 PATCH ONTO THE SKIN EVERY THIRD DAY ALSO USES 25 MCG FOR TOTAL 125 MCG/HR)
     Dates: start: 20190223
  7. FLONASE [Concomitant]
     Active Substance: FLUTICASONE PROPIONATE
     Dosage: 50 UG, DAILY
     Route: 045
     Dates: start: 20190221
  8. PROCHLORPERAZINE. [Concomitant]
     Active Substance: PROCHLORPERAZINE
     Indication: VOMITING
  9. SINGULAIR [Concomitant]
     Active Substance: MONTELUKAST SODIUM
     Dosage: 10 MG, DAILY
     Route: 048
  10. SODIUM CHLORIDE 0.9% [Concomitant]
     Active Substance: SODIUM CHLORIDE
     Dosage: 20 ML, 2X/DAY
     Route: 042
  11. XELJANZ [Suspect]
     Active Substance: TOFACITINIB CITRATE
     Indication: CROHN^S DISEASE
     Dosage: 10 MG, 2X/DAY
     Route: 048
     Dates: start: 20181018, end: 20181218
  12. PREDNISONE. [Concomitant]
     Active Substance: PREDNISONE
     Dosage: 30 MG, 1X/DAY (WITH BREAKFAST)
     Route: 048
     Dates: start: 20190811
  13. PEPCID [Concomitant]
     Active Substance: FAMOTIDINE
     Dosage: 20 MG, 2X/DAY
     Route: 048
     Dates: start: 20190221
  14. DURAGESIC [Concomitant]
     Active Substance: FENTANYL
     Dosage: UNK (2 PATCHES ONTO THE SKIN EVERY THIRD DAY APPLIES WITH 100MCG FOR TOTAL 125 MCG /HR)
     Dates: start: 20141211
  15. MORPHINE [Concomitant]
     Active Substance: MORPHINE
     Indication: PAIN
     Dosage: 20 MG/ML, AS NEEDED (1.3-2.5 MLS (5.2-10 MG TOTAL) EVERY 4 HOURS AS NEEDED)
     Route: 048
     Dates: start: 20190801, end: 20190811
  16. KLOR-CON M20 [Concomitant]
     Active Substance: POTASSIUM CHLORIDE
     Dosage: 80 MEQ, DAILY(20 MEQ BY MOUTH 3 (THREE) TIMES DAILY)(10 MEQ TWICE DAILY WITH 20 MEQ FOR 30 MEQ TOTAL
     Route: 048
  17. DELTASONE [Concomitant]
     Active Substance: PREDNISONE
     Dosage: 10 MG, DAILY WITH BREAKFAST
     Route: 048
  18. LYRICA [Concomitant]
     Active Substance: PREGABALIN
     Dosage: 50 MG, DAILY
     Route: 048
  19. ZOFRAN [Concomitant]
     Active Substance: ONDANSETRON HYDROCHLORIDE
     Indication: NAUSEA
     Dosage: 4 MG, AS NEEDED (EVERY 8 (EIGHT) HOURS AS NEEDED)
     Route: 060
  20. DELTASONE [Concomitant]
     Active Substance: PREDNISONE
     Dosage: 30 MG, 3X/DAY
     Route: 048
     Dates: start: 20190811
  21. MIRTAZAPINE. [Concomitant]
     Active Substance: MIRTAZAPINE
     Dosage: 15 MG, 1X/DAY AT NIGHT
     Route: 048
  22. CETRIZINE [Concomitant]
     Active Substance: CETIRIZINE HYDROCHLORIDE
     Indication: MULTIPLE ALLERGIES
     Dosage: 10 MG, AS NEEDED
     Route: 048
  23. ENTOCORT EC [Concomitant]
     Active Substance: BUDESONIDE
     Dosage: 9 MG, 1X/DAY EVERY MORNING
     Route: 048
  24. XELJANZ [Suspect]
     Active Substance: TOFACITINIB CITRATE
     Dosage: 10 MG, 2X/DAY
     Route: 048
     Dates: start: 20190719
  25. PROTONIX [Concomitant]
     Active Substance: PANTOPRAZOLE SODIUM
     Dosage: 40 MG, 1X/DAY (EVERY MORNING BEFORE BREAKFAST)
     Route: 048
     Dates: start: 20190802
  26. PROCHLORPERAZINE. [Concomitant]
     Active Substance: PROCHLORPERAZINE
     Indication: NAUSEA
     Dosage: 5 MG, AS NEEDED
     Route: 048
  27. VISTARIL [HYDROXYZINE HYDROCHLORIDE] [Concomitant]
     Indication: RESTLESS LEGS SYNDROME
     Dosage: 25 MG, THREE TIMES DAILY AS NEEDED
     Route: 048
  28. CORTEF ACETATE [Concomitant]
     Active Substance: HYDROCORTISONE ACETATE
     Dosage: 20 MG, DAILY (TAKE 15 MG BY MOUTH DAILY ALSO TAKES 5 MG AT LUNCH)
     Route: 048
  29. LIDODERM [Concomitant]
     Active Substance: LIDOCAINE
     Indication: PAIN
     Dosage: UNK,1 PATCH TO PAINFUL AREA, UP TO 12 HOURS IN ANY 24 HOUR PERIOD. MAX 1 IN A 24 HOUR PERIOD REFILLS
  30. MIRTAZAPINE. [Concomitant]
     Active Substance: MIRTAZAPINE
     Dosage: 7.5 MG, 1X/DAY AT BEDTIME
  31. VITAMIN B12 [Concomitant]
     Active Substance: CYANOCOBALAMIN
     Dosage: 1000 MG/ML, WEEKLY
  32. VITAMIN D3 [Concomitant]
     Active Substance: CHOLECALCIFEROL
     Dosage: 50000 IU, ALTERNATE DAY
     Route: 048
  33. VITAMIN C ACID [Concomitant]
     Active Substance: ASCORBIC ACID
     Dosage: 1000 MG, DAILY
  34. IMODIUM [Concomitant]
     Active Substance: LOPERAMIDE HYDROCHLORIDE
     Dosage: 2 MG, 1X/DAY (EVERY MORNING)
     Route: 048
  35. LOTRIMIN [Concomitant]
     Active Substance: CLOTRIMAZOLE
     Indication: PRURITUS
     Dosage: UNK UNK, 2X/DAY 2X/DAY (APPLY 1 APPLICATION TOPICALLY 2 (TWO) TIMES DAILY AS NEEDED)
     Route: 061
  36. SINEQUAN [Concomitant]
     Active Substance: DOXEPIN HYDROCHLORIDE
     Dosage: 10 MG, 1X/DAY (AT BEDTIME)
     Route: 048
     Dates: start: 20190528
  37. MI-ACID [Concomitant]
     Indication: FLATULENCE
     Dosage: 80 MG, EVERY 6 HOURS AS NEEDED
     Route: 048
     Dates: start: 20190221
  38. KLOR-CON [Concomitant]
     Active Substance: POTASSIUM CHLORIDE
     Dosage: 30 MEQ, DAILY (10 MEQ BY MOUTH TWICE A DAY TAKES WITH 20 MEQ FOR 30 MEQ TOTAL DOSE)
     Route: 048

REACTIONS (19)
  - Muscular weakness [Recovered/Resolved]
  - Blood loss anaemia [Recovered/Resolved]
  - Tachycardia [Unknown]
  - Respiratory failure [Recovered/Resolved]
  - Upper airway obstruction [Unknown]
  - Product use in unapproved indication [Unknown]
  - Off label use [Unknown]
  - Condition aggravated [Unknown]
  - Dyspnoea [Unknown]
  - Gait disturbance [Unknown]
  - Botulism [Recovered/Resolved]
  - Dysphagia [Recovered/Resolved]
  - Staphylococcal infection [Unknown]
  - Stoma obstruction [Unknown]
  - Gastrointestinal haemorrhage [Unknown]
  - Aphonia [Recovered/Resolved]
  - Clostridium difficile colitis [Recovered/Resolved]
  - Small intestinal obstruction [Unknown]
  - Hypotension [Unknown]

NARRATIVE: CASE EVENT DATE: 2018
